FAERS Safety Report 13446398 (Version 2)
Quarter: 2017Q2

REPORT INFORMATION
  Report Type: Spontaneous
  Country: US (occurrence: US)
  Receive Date: 20170417
  Receipt Date: 20170508
  Transmission Date: 20170830
  Serious: No
  Sender: FDA-Public Use
  Company Number: US-ASTRAZENECA-2017SE19408

PATIENT
  Age: 24731 Day
  Sex: Female
  Weight: 55.3 kg

DRUGS (2)
  1. OXYGEN. [Concomitant]
     Active Substance: OXYGEN
     Indication: CHRONIC OBSTRUCTIVE PULMONARY DISEASE
     Dosage: 2.0L CONTINUOUSLY
     Route: 045
     Dates: start: 2014
  2. TUDORZA PRESSAIR [Suspect]
     Active Substance: ACLIDINIUM BROMIDE
     Indication: CHRONIC OBSTRUCTIVE PULMONARY DISEASE
     Route: 055
     Dates: start: 2014

REACTIONS (6)
  - Hypertension [Unknown]
  - Product packaging quantity issue [Unknown]
  - Dyspnoea [Unknown]
  - Intentional product misuse [Unknown]
  - Drug dose omission [Unknown]
  - Device failure [Unknown]

NARRATIVE: CASE EVENT DATE: 20170121
